FAERS Safety Report 5862463-4 (Version None)
Quarter: 2008Q3

REPORT INFORMATION
  Report Type: 
  Country: None (occurrence: None)
  Receive Date: 20080828
  Receipt Date: 20080821
  Transmission Date: 20090109
  Serious: Yes (Life-Threatening, Hospitalization)
  Sender: FDA-Public Use
  Company Number: CH-ELI_LILLY_AND_COMPANY-CH200807002409

PATIENT
  Age: 31 Year
  Sex: Male
  Weight: 81 kg

DRUGS (3)
  1. ZYPREXA [Suspect]
     Indication: SCHIZOPHRENIA, PARANOID TYPE
     Dosage: UNK UNK, DAILY (1/D)
     Route: 048
     Dates: start: 20030101, end: 20070801
  2. RISPERDAL CONSTA [Interacting]
     Indication: SCHIZOPHRENIA, PARANOID TYPE
     Dosage: 50 MG, OTHER
     Route: 030
     Dates: start: 20070125, end: 20070811
  3. ALCOHOL [Concomitant]
     Dates: start: 20070101

REACTIONS (4)
  - ALCOHOL ABUSE [None]
  - DRUG INTERACTION [None]
  - PSYCHOTIC DISORDER [None]
  - PULMONARY EMBOLISM [None]
